FAERS Safety Report 7936282-9 (Version None)
Quarter: 2011Q4

REPORT INFORMATION
  Report Type: 
  Country: None (occurrence: None)
  Receive Date: 20111123
  Receipt Date: 20111114
  Transmission Date: 20120403
  Serious: Yes (Hospitalization)
  Sender: FDA-Public Use
  Company Number: US-BAYER-201039603NA

PATIENT
  Age: 42 Year
  Sex: Female

DRUGS (4)
  1. VYTORIN [Concomitant]
     Dosage: UNK
     Route: 048
     Dates: start: 20040101, end: 20070101
  2. SINGULAIR [Concomitant]
     Dosage: UNK
     Dates: start: 20070605
  3. YAZ [Suspect]
     Indication: ORAL CONTRACEPTION
     Dosage: UNK
     Route: 048
     Dates: start: 20070601, end: 20070901
  4. ZOLOFT [Concomitant]
     Dosage: UNK
     Route: 048
     Dates: start: 20040101, end: 20070101

REACTIONS (2)
  - CHEST PAIN [None]
  - PULMONARY EMBOLISM [None]
